FAERS Safety Report 8337414-3 (Version None)
Quarter: 2012Q1

REPORT INFORMATION
  Report Type: 
  Country: None (occurrence: None)
  Receive Date: 20120329
  Receipt Date: 20100618
  Transmission Date: 20120608
  Serious: Yes (Other)
  Sender: FDA-Public Use
  Company Number: PHHY2010US38910

PATIENT
  Age: 72 Year
  Sex: Female
  Weight: 61.3 kg

DRUGS (5)
  1. FLUOXETINE [Concomitant]
  2. LIPITOR [Concomitant]
  3. EXELON [Suspect]
     Indication: DEMENTIA ALZHEIMER'S TYPE
     Dosage: 4.6 MG, TRANSDERMAL
     Route: 062
  4. LEVOTHYROXINE SODIUM [Concomitant]
  5. FOSTEUM [Concomitant]

REACTIONS (5)
  - CRYING [None]
  - DEPRESSION [None]
  - APPLICATION SITE ERYTHEMA [None]
  - APPLICATION SITE RASH [None]
  - APPLICATION SITE PRURITUS [None]
